FAERS Safety Report 6997071 (Version 5)
Quarter: 2013Q3

REPORT INFORMATION
  Report Type: Spontaneous
  Country: JP (occurrence: None)
  Receive Date: 20090421
  Receipt Date: 20130729
  Transmission Date: 20140515
  Serious: Yes (Hospitalization, Other)
  Sender: FDA-Public Use
  Company Number: THYM-1001009

PATIENT
  Age: 38 Year
  Sex: Male
  Weight: 58 kg

DRUGS (15)
  1. THYMOGLOBULIN [Suspect]
     Indication: BONE MARROW CONDITIONING REGIMEN
     Dosage: 145 MG, QD, INTRAVENOUS
     Route: 042
     Dates: start: 20090313, end: 20090316
  2. LOXOPROFEN SODIUM (LOXOPROFEN SODIUM) [Concomitant]
  3. HYDROXYZINE HYDROCHLORIDE (HYDROXYZINE HYDROCHLORIDE) [Concomitant]
  4. METHYLPREDNISOLONE  SODIUM SUCCINATE (METHYLPREDNISOLONE SODIUM SUCCINATEO [Concomitant]
  5. CYCLOPHOSPHAMIDE (CYCLOPHOSPHAMIDE) [Concomitant]
  6. MEROPENEM [Concomitant]
  7. PREDNISOLONE ACETATE [Concomitant]
  8. MESNA [Concomitant]
  9. FUROSEMIDE (FUROSEMIDE) [Concomitant]
  10. VORICONAZOLE [Concomitant]
  11. LANSOPRAZOLE (LANSOPROAZOLE) [Concomitant]
  12. BACTRIM [Concomitant]
  13. URSODEOXYCHOLIC ACID (URSODEOYCHOLIC ACID) [Concomitant]
  14. ACYCLOVIR [Concomitant]
  15. LIDOCAINE [Concomitant]

REACTIONS (4)
  - Sinus bradycardia [None]
  - Chronic graft versus host disease [None]
  - Staphylococcal sepsis [None]
  - Post transplant lymphoproliferative disorder [None]
